FAERS Safety Report 5018456-2 (Version None)
Quarter: 2006Q2

REPORT INFORMATION
  Report Type: 
  Country: None (occurrence: None)
  Receive Date: 20060530
  Receipt Date: 20060519
  Transmission Date: 20061013
  Serious: Yes (Death)
  Sender: FDA-Public Use
  Company Number: 2006-05-1654

PATIENT
  Age: 90 Year
  Sex: Female

DRUGS (1)
  1. K-DUR 10 [Suspect]
     Dosage: 10 MEQ

REACTIONS (1)
  - DEATH [None]
